FAERS Safety Report 6202507-3 (Version None)
Quarter: 2009Q2

REPORT INFORMATION
  Report Type: 
  Country: None (occurrence: None)
  Receive Date: 20090520
  Receipt Date: 20090505
  Transmission Date: 20091009
  Serious: Yes (Death)
  Sender: FDA-Public Use
  Company Number: 2009PV000044

PATIENT
  Age: 25 Month
  Sex: Male

DRUGS (1)
  1. DEPOCYT [Suspect]
     Indication: METASTASES TO MENINGES
     Dosage: 25 MG;1X;INTH
     Route: 037

REACTIONS (5)
  - CAUDA EQUINA SYNDROME [None]
  - MALIGNANT NEOPLASM PROGRESSION [None]
  - NEUROTOXICITY [None]
  - RADICULOPATHY [None]
  - RESPIRATORY FAILURE [None]
